FAERS Safety Report 6381455-2 (Version None)
Quarter: 2009Q3

REPORT INFORMATION
  Report Type: 
  Country: None (occurrence: None)
  Receive Date: 20090923
  Receipt Date: 20090915
  Transmission Date: 20100115
  Serious: Yes (Hospitalization, Disabling, Other)
  Sender: FDA-Public Use
  Company Number: 382000

PATIENT
  Age: 63 Year
  Sex: Female
  Weight: 61.8 kg

DRUGS (14)
  1. METHOTREXATE [Suspect]
  2. ENBREL [Suspect]
     Indication: TUBERCULOSIS
     Dosage: 50 MG, 1 WEEK, SUBCUTANEOUS
     Route: 058
     Dates: start: 20090406, end: 20090501
  3. (SULFASALAZINE) [Suspect]
  4. CHOLESTYRAMINE [Concomitant]
  5. (CODEINE) [Concomitant]
  6. COTRIM [Concomitant]
  7. ETHAMBUTOL HYDROCHLORIDE [Concomitant]
  8. FLUOXETINE [Concomitant]
  9. MS CONTIN [Concomitant]
  10. OMEPRAZOLE [Concomitant]
  11. ACETAMINOPHEN [Concomitant]
  12. (PYRIDOXINE) [Concomitant]
  13. (RAMIPRIL) [Concomitant]
  14. RIFATER [Concomitant]

REACTIONS (6)
  - ANAEMIA [None]
  - BLOOD ALBUMIN DECREASED [None]
  - DIARRHOEA [None]
  - LYMPHADENOPATHY [None]
  - PLEURAL EFFUSION [None]
  - WEIGHT DECREASED [None]
